FAERS Safety Report 20088559 (Version 1)
Quarter: 2021Q4

REPORT INFORMATION
  Report Type: Spontaneous
  Country: US (occurrence: US)
  Receive Date: 20211119
  Receipt Date: 20211119
  Transmission Date: 20220303
  Serious: No
  Sender: FDA-Public Use
  Company Number: US-TEVA-2021-US-1969599

PATIENT
  Age: 58 Year
  Sex: Female

DRUGS (30)
  1. COPAXONE [Suspect]
     Active Substance: GLATIRAMER ACETATE
     Route: 065
  2. ALBUTEROL SULFATE [Concomitant]
     Active Substance: ALBUTEROL SULFATE
  3. ALENDRONATE [Concomitant]
     Active Substance: ALENDRONATE SODIUM
  4. ASCORBIC ACID [Concomitant]
     Active Substance: ASCORBIC ACID
  5. BACLOFEN [Concomitant]
     Active Substance: BACLOFEN
  6. BUTALBITAL, ASPIRIN, AND CAFFEINE [Concomitant]
     Active Substance: ASPIRIN\BUTALBITAL\CAFFEINE
  7. CETIRIZINE [Concomitant]
     Active Substance: CETIRIZINE HYDROCHLORIDE
  8. CLINDAMYCIN [Concomitant]
     Active Substance: CLINDAMYCIN
  9. CLONAZEPAM [Concomitant]
     Active Substance: CLONAZEPAM
  10. COPAXONE [Concomitant]
     Active Substance: GLATIRAMER ACETATE
  11. CRANBERRY [Concomitant]
     Active Substance: CRANBERRY
  12. DALFAMPRIDINE [Concomitant]
     Active Substance: DALFAMPRIDINE
  13. DICLOFENAC SODIUM [Concomitant]
     Active Substance: DICLOFENAC SODIUM
  14. DULOXETINE [Concomitant]
     Active Substance: DULOXETINE
  15. FAMOTIDINE [Concomitant]
     Active Substance: FAMOTIDINE
  16. CHONDROITIN SULFATE (BOVINE)\GLUCOSAMINE SULFATE [Concomitant]
     Active Substance: CHONDROITIN SULFATE (BOVINE)\GLUCOSAMINE SULFATE
  17. LEVOTHYROXINE [Concomitant]
     Active Substance: LEVOTHYROXINE
  18. LIDOCAINE [Concomitant]
     Active Substance: LIDOCAINE
  19. MAGNESIUM OXIDE [Concomitant]
     Active Substance: MAGNESIUM OXIDE
  20. MINOXIDIL [Concomitant]
     Active Substance: MINOXIDIL
  21. OMEGA-3-ACID ETHYL ESTERS [Concomitant]
     Active Substance: OMEGA-3-ACID ETHYL ESTERS
  22. OMEPRAZOLE [Concomitant]
     Active Substance: OMEPRAZOLE
  23. OXYBUTYNIN [Concomitant]
     Active Substance: OXYBUTYNIN
  24. ROSUVASTATIN [Concomitant]
     Active Substance: ROSUVASTATIN
  25. SERTRALINE [Concomitant]
     Active Substance: SERTRALINE HYDROCHLORIDE
  26. Calcium+ D TABS [Concomitant]
  27. HERBALS\TURMERIC [Concomitant]
     Active Substance: HERBALS\TURMERIC
  28. VITAMIN D3 [Concomitant]
     Active Substance: CHOLECALCIFEROL
  29. ZADITOR [Concomitant]
     Active Substance: KETOTIFEN FUMARATE
  30. ESTRADIOL [Concomitant]
     Active Substance: ESTRADIOL

REACTIONS (1)
  - Fatigue [Unknown]
